FAERS Safety Report 21383370 (Version 2)
Quarter: 2022Q4

REPORT INFORMATION
  Report Type: Spontaneous
  Country: US (occurrence: None)
  Receive Date: 20220927
  Receipt Date: 20221014
  Transmission Date: 20230113
  Serious: Yes (Other)
  Sender: FDA-Public Use
  Company Number: 2018SF47723

PATIENT
  Age: 53 Year
  Sex: Female
  Weight: 77.1 kg

DRUGS (28)
  1. PRILOSEC [Suspect]
     Active Substance: OMEPRAZOLE MAGNESIUM
     Indication: Gastrooesophageal reflux disease
     Route: 048
     Dates: start: 2002, end: 2013
  2. PRILOSEC OTC [Suspect]
     Active Substance: OMEPRAZOLE MAGNESIUM
     Route: 048
  3. PROTONIX [Suspect]
     Active Substance: PANTOPRAZOLE SODIUM
     Indication: Gastrooesophageal reflux disease
     Route: 065
     Dates: start: 20050101, end: 20140101
  4. PROTONIX [Suspect]
     Active Substance: PANTOPRAZOLE SODIUM
     Indication: Gastrooesophageal reflux disease
     Route: 065
     Dates: start: 200512, end: 200604
  5. LISINOPRIL [Concomitant]
     Active Substance: LISINOPRIL
  6. HYDROCHLOROTHIAZIDE [Concomitant]
     Active Substance: HYDROCHLOROTHIAZIDE
  7. FUROSEMIDE [Concomitant]
     Active Substance: FUROSEMIDE
  8. CARVEDILOL [Concomitant]
     Active Substance: CARVEDILOL
  9. AMLODIPINE [Concomitant]
     Active Substance: AMLODIPINE BESYLATE
  10. LASIX [Concomitant]
     Active Substance: FUROSEMIDE
  11. NIFEDICAL XL [Concomitant]
     Active Substance: NIFEDIPINE
  12. COREG [Concomitant]
     Active Substance: CARVEDILOL
  13. PROPRANOLOL [Concomitant]
     Active Substance: PROPRANOLOL HYDROCHLORIDE
  14. NAPROXEN [Concomitant]
     Active Substance: NAPROXEN
  15. RABEPRAZOLE [Concomitant]
     Active Substance: RABEPRAZOLE
  16. POTASSIUM [Concomitant]
     Active Substance: POTASSIUM
  17. ADDERALL [Concomitant]
     Active Substance: AMPHETAMINE ASPARTATE\AMPHETAMINE SULFATE\DEXTROAMPHETAMINE SACCHARATE\DEXTROAMPHETAMINE SULFATE
  18. CLONIDINE [Concomitant]
     Active Substance: CLONIDINE
  19. KLOR-CON [Concomitant]
     Active Substance: POTASSIUM CHLORIDE
  20. AMPHETAM [Concomitant]
  21. RISPERIDONE [Concomitant]
     Active Substance: RISPERIDONE
  22. HALOPERIDOL [Concomitant]
     Active Substance: HALOPERIDOL
  23. VENLAFAXINE [Concomitant]
     Active Substance: VENLAFAXINE HYDROCHLORIDE
  24. PATANOL [Concomitant]
     Active Substance: OLOPATADINE HYDROCHLORIDE
  25. POTASSIUM CHLORIDE [Concomitant]
     Active Substance: POTASSIUM CHLORIDE
  26. ABILIFY [Concomitant]
     Active Substance: ARIPIPRAZOLE
  27. NORTRIPTYLINE HYDROCHLORIDE [Concomitant]
     Active Substance: NORTRIPTYLINE HYDROCHLORIDE
  28. GABAPENTIN [Concomitant]
     Active Substance: GABAPENTIN

REACTIONS (2)
  - Chronic kidney disease [Not Recovered/Not Resolved]
  - Renal failure [Not Recovered/Not Resolved]

NARRATIVE: CASE EVENT DATE: 20160101
